FAERS Safety Report 10503280 (Version 1)
Quarter: 2014Q4

REPORT INFORMATION
  Report Type: Not Available
  Country: US (occurrence: US)
  Receive Date: 20141008
  Receipt Date: 20141008
  Transmission Date: 20150528
  Serious: No
  Sender: FDA-Public Use
  Company Number: US-LUPIN PHARMACEUTICALS INC.-E2B_00002466

PATIENT
  Sex: Female
  Weight: 75 kg

DRUGS (13)
  1. AMLODIPINE BESYLATE TABLETS 2.5 MG [Suspect]
     Active Substance: AMLODIPINE BESYLATE
     Indication: HYPERTENSION
  2. PRAVASTATIN [Concomitant]
     Active Substance: PRAVASTATIN\PRAVASTATIN SODIUM
     Indication: HYPERCHOLESTEROLAEMIA
  3. DIOVAN [Concomitant]
     Active Substance: VALSARTAN
     Indication: HYPERTENSION
  4. DEPAKOTE [Concomitant]
     Active Substance: DIVALPROEX SODIUM
     Indication: MIGRAINE
  5. CARVEDILOL. [Concomitant]
     Active Substance: CARVEDILOL
     Indication: CARDIOVASCULAR EVENT PROPHYLAXIS
  6. AMLODIPINE BESYLATE TABLETS 2.5 MG [Suspect]
     Active Substance: AMLODIPINE BESYLATE
  7. ASPIRIN. [Concomitant]
     Active Substance: ASPIRIN
     Indication: CARDIOVASCULAR EVENT PROPHYLAXIS
  8. FUROSEMIDE. [Concomitant]
     Active Substance: FUROSEMIDE
     Indication: HYPERTENSION
     Dosage: 10-20MG DAILY
  9. AMLODIPINE BESYLATE TABLETS 2.5 MG [Suspect]
     Active Substance: AMLODIPINE BESYLATE
  10. POTASSIUM SOLUTION [Concomitant]
     Indication: ELECTROLYTE SUBSTITUTION THERAPY
     Dosage: 0 TO 2 TSP
  11. ASTELIN [Concomitant]
     Active Substance: AZELASTINE HYDROCHLORIDE
     Indication: HYPERSENSITIVITY
     Route: 045
  12. LORAZEPAM. [Concomitant]
     Active Substance: LORAZEPAM
     Indication: SLEEP DISORDER
  13. CIMETIDINE [Concomitant]
     Active Substance: CIMETIDINE
     Indication: GASTROOESOPHAGEAL REFLUX DISEASE

REACTIONS (4)
  - Hypotension [Recovered/Resolved]
  - Wrong technique in drug usage process [Unknown]
  - Therapeutic response unexpected [Unknown]
  - Fatigue [Recovered/Resolved]
